FAERS Safety Report 11415196 (Version 1)
Quarter: 2015Q3

REPORT INFORMATION
  Report Type: Spontaneous
  Country: US (occurrence: US)
  Receive Date: 20150825
  Receipt Date: 20150825
  Transmission Date: 20151125
  Serious: Yes (Hospitalization)
  Sender: FDA-Public Use
  Company Number: US-SA-2015SA126948

PATIENT
  Age: 64 Year
  Sex: Male

DRUGS (1)
  1. ALLEGRA [Suspect]
     Active Substance: FEXOFENADINE HYDROCHLORIDE
     Indication: HYPERSENSITIVITY
     Route: 048
     Dates: start: 20150813, end: 20150814

REACTIONS (3)
  - Abdominal discomfort [Recovering/Resolving]
  - Intestinal obstruction [Unknown]
  - Dyspnoea [Recovering/Resolving]
